FAERS Safety Report 6377417-1 (Version None)
Quarter: 2009Q3

REPORT INFORMATION
  Report Type: 
  Country: None (occurrence: None)
  Receive Date: 20090921
  Receipt Date: 20090916
  Transmission Date: 20100115
  Serious: Yes (Other)
  Sender: FDA-Public Use
  Company Number: 2009SP014988

PATIENT
  Sex: Female

DRUGS (1)
  1. VIRAFERONPEG [Suspect]
     Indication: HEPATITIS C
     Dosage: 0.35 ML; QW; SC
     Route: 058
     Dates: end: 20090101

REACTIONS (2)
  - DRUG EXPOSURE BEFORE PREGNANCY [None]
  - INTRA-UTERINE DEATH [None]
